FAERS Safety Report 8841189 (Version 1)
Quarter: 2012Q4

REPORT INFORMATION
  Report Type: 
  Country: DE (occurrence: DE)
  Receive Date: 20121015
  Receipt Date: 20121015
  Transmission Date: 20130627
  Serious: Yes (Hospitalization)
  Sender: FDA-Public Use
  Company Number: DE-TEVA-362930GER

PATIENT
  Age: 46 Year
  Sex: Male

DRUGS (5)
  1. AZILECT [Suspect]
     Indication: PARKINSON^S DISEASE
     Dates: start: 20110201, end: 20120201
  2. REQUIP [Suspect]
     Indication: PARKINSON^S DISEASE
     Dates: start: 20110214, end: 20120201
  3. MIRTAZAPINE [Concomitant]
     Dates: start: 20110201, end: 20120201
  4. TAMSULOSIN [Concomitant]
     Dates: start: 20110201
  5. RAMIPRIL [Concomitant]
     Dates: start: 20110201, end: 20120201

REACTIONS (9)
  - Multiple system atrophy [Unknown]
  - Urinary retention [Unknown]
  - Erectile dysfunction [Unknown]
  - Nervousness [Unknown]
  - Memory impairment [Unknown]
  - Disturbance in attention [Unknown]
  - Head discomfort [Unknown]
  - Fear [Unknown]
  - Drug ineffective [Unknown]
